FAERS Safety Report 4891409-0 (Version None)
Quarter: 2005Q4

REPORT INFORMATION
  Report Type: 
  Country: None (occurrence: None)
  Receive Date: 20051223
  Receipt Date: 20051117
  Transmission Date: 20060501
  Serious: No
  Sender: FDA-Public Use
  Company Number: 219617

PATIENT
  Age: 56 Year
  Sex: Male

DRUGS (5)
  1. AVASTIN [Suspect]
     Indication: METASTATIC RENAL CELL CARCINOMA
     Dosage: Q2W, INTRAVENOUS; Q2W, INTRAVENOUS
     Route: 042
     Dates: start: 20050508, end: 20050901
  2. AVASTIN [Suspect]
     Indication: METASTATIC RENAL CELL CARCINOMA
     Dosage: Q2W, INTRAVENOUS; Q2W, INTRAVENOUS
     Route: 042
     Dates: start: 20050907
  3. TARCEVA [Concomitant]
  4. LIPITOR [Concomitant]
  5. FOLIC ACID [Concomitant]

REACTIONS (3)
  - HYPERTENSION [None]
  - HYPOTENSION [None]
  - RASH [None]
